FAERS Safety Report 13557728 (Version 13)
Quarter: 2021Q4

REPORT INFORMATION
  Report Type: Spontaneous
  Country: US (occurrence: US)
  Receive Date: 20170518
  Receipt Date: 20211201
  Transmission Date: 20220303
  Serious: Yes (Other)
  Sender: FDA-Public Use
  Company Number: US-PFIZER INC-2017212769

PATIENT
  Age: 71 Year
  Sex: Female
  Weight: 49 kg

DRUGS (16)
  1. XELJANZ XR [Suspect]
     Active Substance: TOFACITINIB CITRATE
     Indication: Rheumatoid arthritis
     Dosage: 11 MG, DAILY
     Route: 048
  2. XELJANZ XR [Suspect]
     Active Substance: TOFACITINIB CITRATE
     Dosage: 11 MG, DAILY
     Route: 048
     Dates: start: 20180326
  3. DESLORATADINE [Concomitant]
     Active Substance: DESLORATADINE
     Indication: Pruritus
     Dosage: 5 MG, DAILY AS NEEDED
     Dates: start: 20190708
  4. DULOXETINE [Concomitant]
     Active Substance: DULOXETINE
     Indication: Depression
     Dosage: 30 MG, DAILY
  5. LEVOTHYROXINE [Concomitant]
     Active Substance: LEVOTHYROXINE
     Indication: Hypothyroidism
     Dosage: 50 UG, DAILY
  6. MELOXICAM [Concomitant]
     Active Substance: MELOXICAM
     Indication: Rheumatoid arthritis
     Dosage: 15 MG, DAILY
  7. OXYCODONE AND ACETAMINOPHEN [Concomitant]
     Active Substance: ACETAMINOPHEN\OXYCODONE HYDROCHLORIDE
     Indication: Spinal stenosis
     Dosage: 1 DF, 4X/DAY (10-325, EVERY 6 HOURS)
     Dates: start: 201705
  8. TIZANIDINE [Concomitant]
     Active Substance: TIZANIDINE
     Indication: Spinal stenosis
     Dosage: 4 MG, 4X/DAY (EVERY 6 HOURS)
     Dates: start: 201705
  9. TRAZODONE [Concomitant]
     Active Substance: TRAZODONE HYDROCHLORIDE
     Indication: Sleep disorder
     Dosage: 100 MG, 1X/DAY (AT BED TIME)
  10. ASPIRIN [Concomitant]
     Active Substance: ASPIRIN
     Dosage: 81 MG, UNK
  11. C 500 [ASCORBIC ACID] [Concomitant]
     Dosage: 500 MG, UNK
  12. CENTRUM SILVER [ASCORBIC ACID;CALCIUM;MINERALS NOS;RETINOL;TOCOPHERYL [Concomitant]
     Dosage: UNK
  13. D3 50 [Concomitant]
     Dosage: 50 MG, UNK
  14. FLAXSEED OIL [LINUM USITATISSIMUM OIL] [Concomitant]
     Dosage: 1000 MG, UNK
  15. IRON [Concomitant]
     Active Substance: IRON
     Dosage: 325 MG, UNK
  16. MUCINEX DM [Concomitant]
     Active Substance: DEXTROMETHORPHAN HYDROBROMIDE\GUAIFENESIN
     Indication: Hypersensitivity
     Dosage: UNK, AS NEEDED (WHEN NEEDED)

REACTIONS (12)
  - Gait inability [Unknown]
  - Therapeutic product effect incomplete [Unknown]
  - Pain [Unknown]
  - Back pain [Not Recovered/Not Resolved]
  - Blood sodium decreased [Unknown]
  - Dysstasia [Unknown]
  - Loss of personal independence in daily activities [Unknown]
  - Hand deformity [Unknown]
  - Drug hypersensitivity [Unknown]
  - Oropharyngeal discomfort [Unknown]
  - Anxiety [Unknown]
  - Product prescribing error [Unknown]
